FAERS Safety Report 8909411 (Version 3)
Quarter: 2012Q4

REPORT INFORMATION
  Report Type: 
  Country: US (occurrence: US)
  Receive Date: 20121114
  Receipt Date: 20121226
  Transmission Date: 20130627
  Serious: Yes (Other)
  Sender: FDA-Public Use
  Company Number: US-AMGEN-USASP2012072488

PATIENT
  Age: 16 Year
  Sex: Male
  Weight: 99.6 kg

DRUGS (1)
  1. NPLATE [Suspect]
     Indication: IDIOPATHIC THROMBOCYTOPENIC PURPURA
     Dosage: 700 mug, qwk
     Route: 058
     Dates: start: 20120828

REACTIONS (5)
  - Platelet count decreased [Unknown]
  - Therapeutic response decreased [Unknown]
  - Platelet count abnormal [Unknown]
  - Pyrexia [Unknown]
  - Oropharyngeal pain [Unknown]
